FAERS Safety Report 9331040 (Version 1)
Quarter: 2013Q2

REPORT INFORMATION
  Report Type: Spontaneous
  Country: IN (occurrence: IN)
  Receive Date: 20130605
  Receipt Date: 20130605
  Transmission Date: 20140414
  Serious: Yes (Other)
  Sender: FDA-Public Use
  Company Number: IN-JNJFOC-20130600956

PATIENT
  Sex: 0

DRUGS (1)
  1. NICORETTE GUM [Suspect]
     Indication: PRODUCT USED FOR UNKNOWN INDICATION
     Route: 065

REACTIONS (3)
  - Nicotine dependence [Unknown]
  - Intentional drug misuse [Unknown]
  - Overdose [Unknown]
